FAERS Safety Report 21483966 (Version 3)
Quarter: 2023Q1

REPORT INFORMATION
  Report Type: Spontaneous
  Country: JP (occurrence: JP)
  Receive Date: 20221020
  Receipt Date: 20230222
  Transmission Date: 20230417
  Serious: Yes (Death, Life-Threatening, Hospitalization, Other)
  Sender: FDA-Public Use
  Company Number: JP-BRISTOL-MYERS SQUIBB COMPANY-2022-095497

PATIENT
  Age: 78 Year
  Sex: Male
  Weight: 57.6 kg

DRUGS (5)
  1. YERVOY [Suspect]
     Active Substance: IPILIMUMAB
     Indication: Pericardial mesothelioma malignant
     Dosage: NUMBER OF DOSES: 1 DOSE.
     Route: 041
     Dates: start: 20220725, end: 20220725
  2. OPDIVO [Suspect]
     Active Substance: NIVOLUMAB
     Indication: Pericardial mesothelioma malignant
     Dosage: NUMBER OF DOSES: 1 DOSE.
     Route: 041
     Dates: start: 20220725, end: 20220808
  3. NAPROXEN [Concomitant]
     Active Substance: NAPROXEN
     Indication: Tumour associated fever
     Dosage: NUMBER OF ADMINISTRATIONS: 3 TIMES.
     Route: 048
     Dates: start: 20220725, end: 20220912
  4. VONOPRAZAN FUMARATE [Concomitant]
     Active Substance: VONOPRAZAN FUMARATE
     Indication: Product used for unknown indication
     Dosage: NUMBER OF DOSES: 1 DOSE.
     Route: 048
     Dates: start: 20220630, end: 20220912
  5. TRAMADOL [Concomitant]
     Active Substance: TRAMADOL
     Indication: Back pain

REACTIONS (10)
  - Myasthenia gravis [Not Recovered/Not Resolved]
  - Intentional product use issue [Unknown]
  - Upper gastrointestinal haemorrhage [Fatal]
  - Cholinergic syndrome [Recovered/Resolved]
  - Tumour associated fever [Unknown]
  - Spondylolisthesis [Recovering/Resolving]
  - Aspiration [Not Recovered/Not Resolved]
  - Urinary tract infection [Not Recovered/Not Resolved]
  - Pneumonia aspiration [Not Recovered/Not Resolved]
  - Malignant neoplasm progression [Unknown]

NARRATIVE: CASE EVENT DATE: 20220822
